FAERS Safety Report 9915660 (Version 1)
Quarter: 2014Q1

REPORT INFORMATION
  Report Type: Spontaneous
  Country: US (occurrence: None)
  Receive Date: 20140219
  Receipt Date: 20140219
  Transmission Date: 20141002
  Serious: No
  Sender: FDA-Public Use
  Company Number: None

PATIENT
  Age: 60 Year
  Sex: Female
  Weight: 62.6 kg

DRUGS (5)
  1. GABAPENTIN [Suspect]
     Indication: HERPES ZOSTER
     Dosage: 1 PILL 1ST WEEK, 2 PILLS 2ND WEEK, 3 PILLS 3RD WEEK
     Dates: start: 20130819, end: 20130919
  2. SPIRONOLACTONE [Concomitant]
  3. CARVEDILOL [Concomitant]
  4. CLONIDINE [Concomitant]
  5. BENADRYL [Concomitant]

REACTIONS (5)
  - Hypoaesthesia [None]
  - Paraesthesia [None]
  - Paraesthesia [None]
  - Musculoskeletal stiffness [None]
  - Musculoskeletal stiffness [None]
